FAERS Safety Report 13895872 (Version 1)
Quarter: 2017Q3

REPORT INFORMATION
  Report Type: Spontaneous
  Country: US (occurrence: None)
  Receive Date: 20170817
  Receipt Date: 20170817
  Transmission Date: 20171127
  Serious: Yes (Hospitalization)
  Sender: FDA-Public Use
  Company Number: None

PATIENT
  Age: 64 Year
  Sex: Female

DRUGS (10)
  1. DIPHENOXYLATE/ATROPINE [Concomitant]
     Active Substance: ATROPINE\DIPHENOXYLATE
  2. POTASSIUM CHLORIDE. [Concomitant]
     Active Substance: POTASSIUM CHLORIDE
  3. RANITIDINE. [Concomitant]
     Active Substance: RANITIDINE
  4. OXALIPLATIN. [Suspect]
     Active Substance: OXALIPLATIN
     Dosage: MG/M2
     Route: 042
  5. AMOXICILLIN/CLAVULANATE [Concomitant]
     Active Substance: AMOXICILLIN\CLAVULANATE POTASSIUM
  6. IRINOTECAN [Suspect]
     Active Substance: IRINOTECAN
     Indication: NEOPLASM MALIGNANT
     Dosage: MG/M2
     Route: 042
     Dates: start: 20170517, end: 20170623
  7. PANCREALIPASE [Concomitant]
     Active Substance: PANCRELIPASE
  8. PROCHLORPERAZINE. [Concomitant]
     Active Substance: PROCHLORPERAZINE
  9. ONDANSETRON [Concomitant]
     Active Substance: ONDANSETRON
  10. SIMETHICONE (DIMETHICONE) [Concomitant]
     Active Substance: DIMETHICONE

REACTIONS (3)
  - Hypokalaemia [None]
  - Laryngeal oedema [None]
  - Anaphylactic reaction [None]

NARRATIVE: CASE EVENT DATE: 20170623
